FAERS Safety Report 8597866-0 (Version None)
Quarter: 2012Q3

REPORT INFORMATION
  Report Type: 
  Country: None (occurrence: None)
  Receive Date: 20120816
  Receipt Date: 20120814
  Transmission Date: 20120928
  Serious: Yes (Hospitalization)
  Sender: FDA-Public Use
  Company Number: PHHY2012FR070241

PATIENT
  Sex: Male

DRUGS (8)
  1. ACETAMINOPHEN [Concomitant]
  2. COCAINE [Suspect]
     Dosage: 1 G, UNK
     Dates: start: 20120717
  3. CALCIPARINE [Concomitant]
  4. VOLTAREN [Suspect]
     Indication: BACK PAIN
     Dosage: 75 MG, BID
     Route: 048
     Dates: start: 20120718
  5. ESOMEPRAZOLE [Concomitant]
  6. NAPROXEN [Concomitant]
  7. AMLODIPINE BESYLATE [Concomitant]
  8. SODIUM BICARBONATE [Concomitant]

REACTIONS (3)
  - RENAL ISCHAEMIA [None]
  - RENAL FAILURE ACUTE [None]
  - DYSURIA [None]
